FAERS Safety Report 9983292 (Version 1)
Quarter: 2014Q1

REPORT INFORMATION
  Report Type: Spontaneous
  Country: DE (occurrence: DE)
  Receive Date: 20140307
  Receipt Date: 20140307
  Transmission Date: 20141002
  Serious: Yes (Life-Threatening, Other)
  Sender: FDA-Public Use
  Company Number: DE-AMGEN-DEUSP2014016039

PATIENT
  Age: 53 Year
  Sex: Male
  Weight: 120 kg

DRUGS (3)
  1. ENBREL [Suspect]
     Indication: RHEUMATOID ARTHRITIS
     Dosage: 50 MG, WEEKLY
     Route: 058
  2. DICLOFENAC [Concomitant]
     Indication: RHEUMATOID ARTHRITIS
     Dosage: 75 MG, AS NEEDED BY PAIN
     Route: 048
  3. PANTOPRAZOL [Concomitant]
     Dosage: 20 MG, TAKEN WITH NSAR INTAKE
     Route: 048

REACTIONS (2)
  - Oedematous pancreatitis [Recovering/Resolving]
  - Pneumonia [Unknown]
